FAERS Safety Report 24986208 (Version 1)
Quarter: 2025Q1

REPORT INFORMATION
  Report Type: Spontaneous
  Country: FR (occurrence: FR)
  Receive Date: 20250219
  Receipt Date: 20250219
  Transmission Date: 20250408
  Serious: No
  Sender: PFIZER
  Company Number: FR-PFIZER INC-PV202500013491

PATIENT
  Age: 12 Year
  Sex: Female

DRUGS (1)
  1. NGENLA [Suspect]
     Active Substance: SOMATROGON-GHLA
     Dosage: 15 MG, WEEKLY
     Route: 058

REACTIONS (1)
  - Injection site pain [Not Recovered/Not Resolved]
